FAERS Safety Report 5643261-3 (Version None)
Quarter: 2008Q1

REPORT INFORMATION
  Report Type: 
  Country: None (occurrence: None)
  Receive Date: 20080228
  Receipt Date: 20080225
  Transmission Date: 20080703
  Serious: Yes (Death, Life-Threatening)
  Sender: FDA-Public Use
  Company Number: HQWYE822925APR07

PATIENT
  Sex: Male

DRUGS (2)
  1. GEMTUZUMAB OZOGAMICIN [Suspect]
     Indication: ACUTE MYELOID LEUKAEMIA
     Dosage: 12 MG
     Route: 065
     Dates: start: 20070419, end: 20070419
  2. DECORTIN [Concomitant]
     Route: 048
     Dates: start: 20070416, end: 20070418

REACTIONS (3)
  - PNEUMONIA [None]
  - PULMONARY HAEMORRHAGE [None]
  - SEPSIS [None]
